FAERS Safety Report 8954812 (Version 1)
Quarter: 2012Q4

REPORT INFORMATION
  Report Type: Spontaneous
  Country: US (occurrence: None)
  Receive Date: 20121204
  Receipt Date: 20121204
  Transmission Date: 20130627
  Serious: No
  Sender: FDA-Public Use
  Company Number: None

PATIENT
  Age: 30 Year
  Sex: Female
  Weight: 66.68 kg

DRUGS (1)
  1. DIAZAPAM 10 MG GEL [Suspect]
     Indication: SEIZURES

REACTIONS (3)
  - Convulsion [None]
  - Vomiting [None]
  - Product substitution issue [None]
